FAERS Safety Report 22518375 (Version 2)
Quarter: 2023Q2

REPORT INFORMATION
  Report Type: Report from Study
  Country: US (occurrence: US)
  Receive Date: 20230605
  Receipt Date: 20230630
  Transmission Date: 20230721
  Serious: No
  Sender: FDA-Public Use
  Company Number: US-ACADIA PHARMACEUTICALS INC.-ACA-2023-PIM-001833

PATIENT
  Age: 83 Year
  Sex: Male

DRUGS (16)
  1. NUPLAZID [Suspect]
     Active Substance: PIMAVANSERIN TARTRATE
     Indication: Parkinson^s disease psychosis
     Dosage: 34 MILLIGRAM, QD
     Route: 048
  2. NUPLAZID [Suspect]
     Active Substance: PIMAVANSERIN TARTRATE
     Indication: Hallucination
     Dosage: 34 MILLIGRAM, QD
     Route: 048
     Dates: start: 20230420, end: 20230607
  3. NUPLAZID [Suspect]
     Active Substance: PIMAVANSERIN TARTRATE
     Indication: Parkinson^s disease
  4. XANAX [Concomitant]
     Active Substance: ALPRAZOLAM
  5. L-ARGININE [ARGININE HYDROCHLORIDE] [Concomitant]
  6. ASCORBIC ACID [Concomitant]
     Active Substance: ASCORBIC ACID
  7. ASPIRIN [Concomitant]
     Active Substance: ASPIRIN
  8. SINEMET [Concomitant]
     Active Substance: CARBIDOPA\LEVODOPA
  9. VITAMIN D3 [Concomitant]
     Active Substance: CHOLECALCIFEROL
  10. COENZYME Q10 [Concomitant]
     Active Substance: DIETARY SUPPLEMENT\UBIDECARENONE
  11. VITAMIN K [Concomitant]
     Active Substance: PHYTONADIONE
  12. PROAMATINE [Concomitant]
     Active Substance: MIDODRINE HYDROCHLORIDE
  13. LUTEIN [Concomitant]
     Active Substance: LUTEIN
  14. PROSTATE SR [Concomitant]
  15. ADULT MULTIVITAMIN [Concomitant]
  16. PRAVACHOL [Concomitant]
     Active Substance: PRAVASTATIN SODIUM

REACTIONS (6)
  - Delusion [Recovered/Resolved]
  - Psychotic disorder [Recovered/Resolved]
  - Mobility decreased [Recovered/Resolved]
  - Dizziness [Unknown]
  - Aggression [Recovered/Resolved]
  - Hallucination [Recovered/Resolved]

NARRATIVE: CASE EVENT DATE: 20230609
